FAERS Safety Report 20819591 (Version 1)
Quarter: 2022Q2

REPORT INFORMATION
  Report Type: Spontaneous
  Country: US (occurrence: None)
  Receive Date: 20220512
  Receipt Date: 20220512
  Transmission Date: 20220721
  Serious: Yes (Hospitalization)
  Sender: FDA-Public Use
  Company Number: None

PATIENT
  Age: 71 Year
  Sex: Male
  Weight: 105 kg

DRUGS (1)
  1. CYTARABINE [Suspect]
     Active Substance: CYTARABINE
     Dates: end: 20220422

REACTIONS (4)
  - Febrile neutropenia [None]
  - Staphylococcus test positive [None]
  - Culture urine positive [None]
  - Tachycardia [None]

NARRATIVE: CASE EVENT DATE: 20220503
